FAERS Safety Report 4364938-6 (Version None)
Quarter: 2004Q2

REPORT INFORMATION
  Report Type: 
  Country: None (occurrence: None)
  Receive Date: 20040521
  Receipt Date: 20040513
  Transmission Date: 20050107
  Serious: Yes (Other)
  Sender: FDA-Public Use
  Company Number: 2004018796

PATIENT
  Age: 42 Year
  Sex: Female
  Weight: 72.5755 kg

DRUGS (8)
  1. LIPITOR [Suspect]
     Indication: BLOOD CHOLESTEROL INCREASED
     Dosage: 20 MG (DAILY) ORAL
     Route: 048
  2. GEMFIBROZIL [Suspect]
     Indication: BLOOD CHOLESTEROL INCREASED
     Dosage: 20 MG (DAILY) ORAL
     Route: 048
  3. PIROXICAM [Suspect]
     Indication: ARTHRITIS
     Dates: start: 20021101
  4. CHONDROITIN / GLUCOSAMINE (GLUCOSAMINE CHONDROITIN) [Suspect]
     Indication: ARTHRITIS
     Dates: start: 20021101
  5. GENERAL NUTRIENTS (GENERAL NUTRIENTS) [Suspect]
     Indication: ARTHRITIS
     Dates: start: 20021101
  6. INSULIN LISPRO (INSULIN LISPRO) [Concomitant]
  7. INSULIN GLARGINE (INSULIN GLARGINE) [Concomitant]
  8. METFORMIN HCL [Concomitant]

REACTIONS (9)
  - ARTHRALGIA [None]
  - ARTHRITIS [None]
  - DRUG INEFFECTIVE [None]
  - EXERCISE TOLERANCE DECREASED [None]
  - INSOMNIA [None]
  - INTERVERTEBRAL DISC PROTRUSION [None]
  - LOW DENSITY LIPOPROTEIN INCREASED [None]
  - PAIN IN EXTREMITY [None]
  - TREATMENT NONCOMPLIANCE [None]
